FAERS Safety Report 18189272 (Version 2)
Quarter: 2020Q3

REPORT INFORMATION
  Report Type: Spontaneous
  Country: JP (occurrence: JP)
  Receive Date: 20200824
  Receipt Date: 20200904
  Transmission Date: 20201103
  Serious: Yes (Other)
  Sender: FDA-Public Use
  Company Number: JP-MALLINCKRODT-T202004165

PATIENT
  Age: 85 Year
  Sex: Female

DRUGS (7)
  1. AMITIZA [Suspect]
     Active Substance: LUBIPROSTONE
     Indication: CONSTIPATION
     Dosage: 12 MICROGRAM, QD
     Route: 048
     Dates: start: 20200709, end: 20200730
  2. PICOSULFATE DE SODIUM [Concomitant]
     Indication: CONSTIPATION
     Dosage: PRN
     Route: 048
     Dates: start: 20200709
  3. SODIUM CHLORIDE. [Concomitant]
     Active Substance: SODIUM CHLORIDE
     Indication: HYPONATRAEMIA
     Dosage: 3 GRAM, DAILY
     Route: 048
     Dates: start: 20200707
  4. TRAZODONE HYDROCHLORIDE. [Suspect]
     Active Substance: TRAZODONE HYDROCHLORIDE
     Indication: DELIRIUM
     Dosage: 50 MILLIGRAM, DAILY
     Route: 048
     Dates: start: 20200706, end: 20200730
  5. TOARASET [Concomitant]
     Active Substance: ACETAMINOPHEN\TRAMADOL HYDROCHLORIDE
     Indication: PAIN
     Dosage: 2 DOSAGE FORM, DAILY
     Route: 048
     Dates: start: 20200706, end: 20200713
  6. LINACLOTIDE [Concomitant]
     Active Substance: LINACLOTIDE
     Indication: PRODUCT USED FOR UNKNOWN INDICATION
     Dosage: 0.5 MILLIGRAM, DAILY
     Route: 048
  7. TOARASET [Concomitant]
     Active Substance: ACETAMINOPHEN\TRAMADOL HYDROCHLORIDE
     Dosage: 3 DOSAGE FORM, DAILY
     Route: 048
     Dates: start: 20200714

REACTIONS (1)
  - Anaemia [Recovered/Resolved]

NARRATIVE: CASE EVENT DATE: 20200727
